FAERS Safety Report 5282375-7 (Version None)
Quarter: 2007Q1

REPORT INFORMATION
  Report Type: 
  Country: None (occurrence: None)
  Receive Date: 20070326
  Receipt Date: 20070322
  Transmission Date: 20070707
  Serious: Yes (Life-Threatening)
  Sender: FDA-Public Use
  Company Number: 229116

PATIENT
  Age: 69 Year
  Sex: Male

DRUGS (7)
  1. GRTPA(ALTEPLASE) PWDR + SOLVENT, INFUSION SOLN [Suspect]
     Indication: CEREBRAL ARTERY EMBOLISM
     Dosage: 36 MG, SINGLE, INTRAVENOUS
     Route: 042
     Dates: start: 20060507, end: 20060507
  2. RADICUT (EDARAVONE) [Concomitant]
  3. GLYCEOL (GLYCERIN) [Concomitant]
  4. NICARDIPINE HYDROCHLORIDE [Concomitant]
  5. OMEPRAL (OMEPRAZOLE) [Concomitant]
  6. HESPANDER (HETASTARCH) [Concomitant]
  7. VEEN F (UNK INGREDIENTS) (GENERIC COMPONENT(S) NOT KNOWN) [Concomitant]

REACTIONS (6)
  - ACTIVATED PARTIAL THROMBOPLASTIN TIME PROLONGED [None]
  - BLOOD GLUCOSE INCREASED [None]
  - BLOOD PRESSURE SYSTOLIC INCREASED [None]
  - CEREBRAL ARTERY EMBOLISM [None]
  - HAEMOGLOBIN DECREASED [None]
  - PULMONARY OEDEMA [None]
